FAERS Safety Report 6112825-5 (Version None)
Quarter: 2009Q1

REPORT INFORMATION
  Report Type: 
  Country: None (occurrence: None)
  Receive Date: 20090312
  Receipt Date: 20090305
  Transmission Date: 20090719
  Serious: Yes (Other)
  Sender: FDA-Public Use
  Company Number: JP-AVENTIS-200910294JP

PATIENT
  Age: 99 Year
  Sex: Female

DRUGS (1)
  1. LASIX [Suspect]
     Route: 048
     Dates: start: 20090116, end: 20090119

REACTIONS (2)
  - ANOREXIA [None]
  - DEMENTIA [None]
